FAERS Safety Report 21462996 (Version 1)
Quarter: 2022Q4

REPORT INFORMATION
  Report Type: Spontaneous
  Country: BR (occurrence: BR)
  Receive Date: 20221017
  Receipt Date: 20221017
  Transmission Date: 20230113
  Serious: Yes (Other)
  Sender: FDA-Public Use
  Company Number: BR-CELLTRION INC.-2022BR016106

PATIENT

DRUGS (8)
  1. INFLIXIMAB [Suspect]
     Active Substance: INFLIXIMAB
     Indication: Rheumatoid arthritis
     Dosage: OF CONTINUOUS USE
     Route: 042
  2. INFLIXIMAB [Suspect]
     Active Substance: INFLIXIMAB
     Dosage: LAST INFUSION HAPPENED ON JUL/26/2022 AND THE OTHER ONE WOULD HAVE OCCURRED ON SEP/27/2022
     Route: 042
     Dates: start: 20220726
  3. LOSARTAN POTASSIUM [Concomitant]
     Active Substance: LOSARTAN POTASSIUM
     Indication: Hypertension
     Dosage: 2 PILLS PER DAY
     Route: 048
     Dates: start: 2019
  4. LOSARTAN POTASSIUM [Concomitant]
     Active Substance: LOSARTAN POTASSIUM
     Dosage: ONCE A DAY
     Route: 048
  5. PREDNISONE [Concomitant]
     Active Substance: PREDNISONE
     Indication: Pain
     Dosage: 2 PILLS PER DAY
     Route: 048
     Dates: start: 2019
  6. DIPYRONE [Concomitant]
     Active Substance: DIPYRONE
     Indication: Pain
     Dosage: 2 PILLS PER DAY
     Route: 048
     Dates: start: 2019
  7. PREDNISONE [Concomitant]
     Active Substance: PREDNISONE
     Indication: Rheumatoid arthritis
     Dosage: ONCE A DAY
     Route: 048
  8. DIPIRONA [METAMIZOLE SODIUM] [Concomitant]
     Indication: Rheumatoid arthritis
     Dosage: ONCE A DAY
     Route: 048

REACTIONS (6)
  - Rheumatoid arthritis [Unknown]
  - Arthralgia [Unknown]
  - Joint swelling [Unknown]
  - Therapy interrupted [Unknown]
  - Product communication issue [Unknown]
  - Drug ineffective [Not Recovered/Not Resolved]

NARRATIVE: CASE EVENT DATE: 20220101
